FAERS Safety Report 8963756 (Version 1)
Quarter: 2012Q4

REPORT INFORMATION
  Report Type: Report from Study
  Country: GB (occurrence: TW)
  Receive Date: 20121214
  Receipt Date: 20121214
  Transmission Date: 20130627
  Serious: Yes (Hospitalization)
  Sender: FDA-Public Use
  Company Number: TW-ELI_LILLY_AND_COMPANY-TW201212000681

PATIENT
  Age: 52 Year
  Sex: Male
  Weight: 80 kg

DRUGS (5)
  1. GEMCITABINE HYDROCHLORIDE [Suspect]
     Indication: NON-SMALL CELL LUNG CANCER
     Dosage: 2250 mg, 1 in 3 wk
     Route: 042
     Dates: start: 20061213, end: 20070426
  2. BEVACIZUMAB [Suspect]
     Indication: NON-SMALL CELL LUNG CANCER
     Dosage: 1080 mg, every three weeks
     Route: 042
     Dates: start: 20061213
  3. CISPLATIN [Suspect]
     Indication: NON-SMALL CELL LUNG CANCER
     Dosage: 144 mg, 1 in 3 weeks
     Route: 042
     Dates: start: 20061213, end: 20070419
  4. BIOFERMIN [Concomitant]
     Dosage: 30 mg, UNK
     Dates: start: 20070407
  5. PIPERACILLIN [Concomitant]
     Dosage: 13.5 g, UNK
     Dates: start: 20070407

REACTIONS (4)
  - Pneumonia [Recovered/Resolved]
  - Febrile neutropenia [Recovered/Resolved]
  - Pancytopenia [Recovered/Resolved]
  - Pneumonia [Not Recovered/Not Resolved]
